FAERS Safety Report 7904057-2 (Version None)
Quarter: 2011Q4

REPORT INFORMATION
  Report Type: 
  Country: None (occurrence: None)
  Receive Date: 20111109
  Receipt Date: 20111102
  Transmission Date: 20120403
  Serious: Yes (Hospitalization)
  Sender: FDA-Public Use
  Company Number: IN-PFIZER INC-2011270013

PATIENT
  Age: 78 Year
  Sex: Male

DRUGS (2)
  1. NICARDAL [Concomitant]
     Indication: HYPERTENSION
     Dosage: UNK, ONCE
     Route: 048
     Dates: start: 20010101
  2. SUTENT [Suspect]
     Indication: METASTATIC RENAL CELL CARCINOMA
     Dosage: 50 MG, 1X/DAY
     Route: 048
     Dates: start: 20110901, end: 20110915

REACTIONS (4)
  - FLUID RETENTION [None]
  - HYPERTENSION [None]
  - PLATELET COUNT DECREASED [None]
  - BLOOD CREATININE INCREASED [None]
